FAERS Safety Report 5507904-7 (Version None)
Quarter: 2007Q4

REPORT INFORMATION
  Report Type: 
  Country: None (occurrence: None)
  Receive Date: 20071106
  Receipt Date: 20071025
  Transmission Date: 20080405
  Serious: Yes (Other)
  Sender: FDA-Public Use
  Company Number: US-PFIZER INC-2007090194

PATIENT
  Sex: Male
  Weight: 115.7 kg

DRUGS (2)
  1. DILANTIN [Suspect]
     Indication: CONVULSION
  2. LEVOXYL [Concomitant]

REACTIONS (5)
  - ACTIVITIES OF DAILY LIVING IMPAIRED [None]
  - DYSARTHRIA [None]
  - FEELING ABNORMAL [None]
  - MOTOR DYSFUNCTION [None]
  - MUSCLE TWITCHING [None]
